FAERS Safety Report 5569835-6 (Version None)
Quarter: 2007Q4

REPORT INFORMATION
  Report Type: 
  Country: None (occurrence: None)
  Receive Date: 20071220
  Receipt Date: 20070604
  Transmission Date: 20080405
  Serious: No
  Sender: FDA-Public Use
  Company Number: US-ABBOTT-07P-163-0371172-00

PATIENT
  Sex: Male
  Weight: 72.186 kg

DRUGS (1)
  1. OMNICEF [Suspect]
     Indication: STAPHYLOCOCCAL INFECTION
     Route: 048
     Dates: start: 20070305, end: 20070309

REACTIONS (1)
  - RASH [None]
